FAERS Safety Report 10341506 (Version 1)
Quarter: 2014Q3

REPORT INFORMATION
  Report Type: Spontaneous
  Country: FR (occurrence: FR)
  Receive Date: 20140725
  Receipt Date: 20140725
  Transmission Date: 20150326
  Serious: Yes (Life-Threatening, Hospitalization)
  Sender: FDA-Public Use
  Company Number: FR-BRISTOL-MYERS SQUIBB COMPANY-21235361

PATIENT
  Age: 67 Year
  Sex: Female

DRUGS (13)
  1. PHYSIOTENS [Concomitant]
     Active Substance: MOXONIDINE
  2. TERCIAN [Concomitant]
     Active Substance: CYAMEMAZINE
  3. BURINEX [Interacting]
     Active Substance: BUMETANIDE
     Route: 048
     Dates: start: 20140515, end: 20140524
  4. ZOLPIDEM [Concomitant]
     Active Substance: ZOLPIDEM\ZOLPIDEM TARTRATE
  5. INEGY [Concomitant]
     Active Substance: EZETIMIBE\SIMVASTATIN
  6. BIPRETERAX [Interacting]
     Active Substance: INDAPAMIDE\PERINDOPRIL
     Dosage: 10 MG/2.5 MG FILM COATED TABLET
     Route: 048
     Dates: end: 20140524
  7. NOVOMIX [Concomitant]
     Active Substance: INSULIN ASPART
  8. LYSANXIA [Concomitant]
     Active Substance: PRAZEPAM
  9. UVEDOSE [Concomitant]
     Active Substance: CHOLECALCIFEROL
  10. GLUCOPHAGE [Suspect]
     Active Substance: METFORMIN HYDROCHLORIDE
     Dosage: 1DF = 1TAB
     Route: 048
     Dates: end: 20140524
  11. MIRTAZAPINE. [Concomitant]
     Active Substance: MIRTAZAPINE
  12. RIVAROXABAN [Concomitant]
     Active Substance: RIVAROXABAN
  13. PANTOPRAZOLE [Concomitant]
     Active Substance: PANTOPRAZOLE SODIUM

REACTIONS (4)
  - Renal failure acute [Recovering/Resolving]
  - Hyperkalaemia [Recovered/Resolved]
  - Lactic acidosis [Recovered/Resolved]
  - Drug interaction [Unknown]

NARRATIVE: CASE EVENT DATE: 20140524
